FAERS Safety Report 6158260-5 (Version None)
Quarter: 2009Q2

REPORT INFORMATION
  Report Type: 
  Country: None (occurrence: None)
  Receive Date: 20090417
  Receipt Date: 20070810
  Transmission Date: 20091009
  Serious: Yes (Hospitalization, Other)
  Sender: FDA-Public Use
  Company Number: US-ASTRAZENECA-2006UW11006

PATIENT
  Age: 36 Year
  Sex: Female
  Weight: 83.9 kg

DRUGS (14)
  1. SEROQUEL [Suspect]
     Indication: BIPOLAR DISORDER
     Route: 048
     Dates: start: 20000101, end: 20060101
  2. SEROQUEL [Suspect]
     Indication: DEPRESSION
     Route: 048
     Dates: start: 20000101, end: 20060101
  3. SEROQUEL [Suspect]
     Dosage: 25-100 MG
     Route: 048
     Dates: start: 20030714
  4. SEROQUEL [Suspect]
     Dosage: 25-100 MG
     Route: 048
     Dates: start: 20030714
  5. ZYPREXA [Suspect]
  6. DILANTIN [Concomitant]
  7. K-DUR [Concomitant]
  8. CLONAZEPAM [Concomitant]
  9. METFORMIN HCL [Concomitant]
  10. GLIPIZIDE [Concomitant]
  11. METOPROLOL TARTRATE [Concomitant]
  12. SERZONE [Concomitant]
  13. LISINOPRIL [Concomitant]
  14. INSULIN [Concomitant]

REACTIONS (17)
  - ABDOMINAL PAIN [None]
  - ABDOMINAL PAIN UPPER [None]
  - ARTHRALGIA [None]
  - BACK PAIN [None]
  - BLOOD GLUCOSE INCREASED [None]
  - CALCULUS URETERIC [None]
  - DEPRESSED LEVEL OF CONSCIOUSNESS [None]
  - DIABETES MELLITUS [None]
  - DIABETIC COMA [None]
  - DIABETIC KETOACIDOSIS [None]
  - DYSPNOEA [None]
  - FLANK PAIN [None]
  - HAEMATURIA [None]
  - INJURY [None]
  - NEPHROLITHIASIS [None]
  - PELVIC PAIN [None]
  - RESPIRATORY TRACT CONGESTION [None]
